FAERS Safety Report 8438892-1 (Version None)
Quarter: 2012Q2

REPORT INFORMATION
  Report Type: 
  Country: None (occurrence: None)
  Receive Date: 20120323
  Receipt Date: 20110616
  Transmission Date: 20120825
  Serious: Yes (Other)
  Sender: FDA-Public Use
  Company Number: 163-21880-11062661

PATIENT
  Age: 77 Year
  Sex: Male

DRUGS (9)
  1. EXJADE [Concomitant]
  2. REVLIMID [Suspect]
     Indication: MYELODYSPLASTIC SYNDROME
     Dosage: 10 MG, QD X 21, PO
     Route: 048
     Dates: start: 20110501
  3. DOXAZOSIN MESYLATE [Concomitant]
  4. ATENOLOL [Concomitant]
  5. HYDROCHLOROTHIAZIDE [Concomitant]
  6. CO Q-10 (UBIDECARENONE) [Concomitant]
  7. MULTIVITAMIN [Concomitant]
  8. OMEGA-3-6-9 (PELAGO) [Concomitant]
  9. VITAMIN D [Concomitant]

REACTIONS (4)
  - RASH [None]
  - PLATELET COUNT DECREASED [None]
  - HYPOAESTHESIA [None]
  - PARAESTHESIA [None]
